FAERS Safety Report 24166673 (Version 2)
Quarter: 2024Q3

REPORT INFORMATION
  Report Type: Spontaneous
  Country: IL (occurrence: IL)
  Receive Date: 20240802
  Receipt Date: 20240918
  Transmission Date: 20241017
  Serious: Yes (Hospitalization, Other)
  Sender: ASTELLAS
  Company Number: IL-ASTELLAS PHARMA EUROPE B.V.-2024US020103

PATIENT
  Age: 67 Year
  Sex: Male

DRUGS (2)
  1. XTANDI [Suspect]
     Active Substance: ENZALUTAMIDE
     Indication: Prostate cancer
     Dosage: 4 TABLETS OF ENZALUTAMIDE 40 MG
     Route: 048
  2. TRIPTORELIN [Concomitant]
     Active Substance: TRIPTORELIN
     Indication: Prostate cancer
     Dosage: EVERY 3 MONTHS
     Route: 065

REACTIONS (6)
  - Cerebrovascular accident [Unknown]
  - Hypoaesthesia [Recovering/Resolving]
  - Red blood cells urine positive [Not Recovered/Not Resolved]
  - Blood cholesterol increased [Unknown]
  - Prostatic specific antigen increased [Not Recovered/Not Resolved]
  - Drug ineffective [Unknown]

NARRATIVE: CASE EVENT DATE: 20240709
